FAERS Safety Report 8577011-8 (Version None)
Quarter: 2012Q3

REPORT INFORMATION
  Report Type: 
  Country: None (occurrence: None)
  Receive Date: 20120807
  Receipt Date: 20120730
  Transmission Date: 20120928
  Serious: Yes (Hospitalization)
  Sender: FDA-Public Use
  Company Number: FR-UCBSA-060648

PATIENT
  Sex: Female
  Weight: 59 kg

DRUGS (23)
  1. VIMPAT [Suspect]
     Indication: EPILEPSY
     Dosage: 50 MG, 2 TABLETS IN THE MORNING AND 1 TABLET IN THE EVENING
     Route: 048
     Dates: start: 20120301, end: 20120301
  2. VIMPAT [Suspect]
     Route: 048
     Dates: start: 20110101, end: 20120301
  3. LOVENOX [Concomitant]
     Route: 058
     Dates: start: 20120301
  4. KEPPRA [Concomitant]
  5. ROCEPHIN [Concomitant]
     Dosage: 2 G DAILY
     Route: 042
     Dates: start: 20120301
  6. OMEPRAZOLE [Concomitant]
     Dosage: EVENING
     Dates: start: 20120301
  7. ASPIRIN [Concomitant]
     Dosage: 160 MG ONE UNIT IN THE MORNING
     Dates: start: 20120301
  8. SERUM GLUCOSE [Concomitant]
     Dosage: 5%
     Dates: start: 20120301
  9. RISPERDAL [Concomitant]
     Dosage: 0.5 MG
  10. ZYPREXA [Concomitant]
     Indication: ANXIETY
     Dates: end: 20120301
  11. DUPHALAC [Concomitant]
     Dosage: 3 UNITS DAILY
     Dates: start: 20120301
  12. TRAMADOL HCL [Concomitant]
     Dosage: 50 MG 1 TO 4 UNITS DAILY
     Dates: start: 20120301
  13. NEXIUM [Concomitant]
  14. OMEPRAZOLE [Concomitant]
     Dosage: TOTAL DAILY DOSE: 20 MG
     Dates: end: 20120301
  15. ATARAX [Concomitant]
     Dosage: 50 MG IN THE EVENING
  16. DEPAKENE [Concomitant]
     Indication: EPILEPSY
     Route: 048
     Dates: start: 20110101, end: 20120301
  17. FOLIC ACID [Concomitant]
     Dosage: ONE TABLET IN MORNING AND ONE IN EVENING
     Dates: start: 20120301
  18. LOVENOX [Concomitant]
     Dosage: 4000 IU DAILY
     Route: 058
     Dates: start: 20120301, end: 20120101
  19. KEPPRA [Concomitant]
     Indication: EPILEPSY
     Route: 048
     Dates: start: 20110101
  20. DEPAKENE [Concomitant]
     Dosage: 1 G
     Dates: start: 20120101
  21. PREVISCAN [Concomitant]
     Dosage: 20 MG DAILY
     Dates: start: 20120301, end: 20120101
  22. ESCITALOPRAM [Concomitant]
     Dosage: 10 MG
  23. LEVOFLOXACIN [Concomitant]
     Dates: start: 20120301

REACTIONS (24)
  - DISORIENTATION [None]
  - CONFUSIONAL STATE [None]
  - ATRIAL FIBRILLATION [None]
  - LOW DENSITY LIPOPROTEIN INCREASED [None]
  - SINUS BRADYCARDIA [None]
  - RHABDOMYOLYSIS [None]
  - CEREBROVASCULAR ACCIDENT [None]
  - GASTROINTESTINAL HAEMORRHAGE [None]
  - FOLATE DEFICIENCY [None]
  - CARDIOVASCULAR DISORDER [None]
  - CARDIOMEGALY [None]
  - LUNG DISORDER [None]
  - TREMOR [None]
  - NAUSEA [None]
  - EPILEPSY [None]
  - DEPRESSION [None]
  - CONVULSION [None]
  - BLOOD TRIGLYCERIDES INCREASED [None]
  - CONSTIPATION [None]
  - VOMITING [None]
  - ARRHYTHMIA [None]
  - ATRIOVENTRICULAR BLOCK [None]
  - HEART RATE IRREGULAR [None]
  - ATRIAL THROMBOSIS [None]
